FAERS Safety Report 17943035 (Version 6)
Quarter: 2021Q2

REPORT INFORMATION
  Report Type: Spontaneous
  Country: JP (occurrence: JP)
  Receive Date: 20200625
  Receipt Date: 20210512
  Transmission Date: 20210717
  Serious: Yes (Death, Other)
  Sender: FDA-Public Use
  Company Number: NVSJ2020JP006119

PATIENT
  Age: 25 Year
  Sex: Female

DRUGS (9)
  1. NEORAL [Suspect]
     Active Substance: CYCLOSPORINE
     Dosage: THE PATIENT WAS TAKING NEORAL CAP (PROBABLY 160 MG) AFTER DISCHARGE9 PROBABLY 160 MG).
     Route: 048
  2. VFEND [Concomitant]
     Active Substance: VORICONAZOLE
     Indication: STAPHYLOCOCCAL INFECTION
     Dosage: MORE THAN 3 TIMES
     Route: 065
  3. NEORAL [Suspect]
     Active Substance: CYCLOSPORINE
     Indication: IMMUNOSUPPRESSION
     Dosage: UNK MG
     Route: 048
     Dates: start: 201907
  4. VFEND [Concomitant]
     Active Substance: VORICONAZOLE
     Indication: CYTOMEGALOVIRUS INFECTION
  5. SANDIMMUN INFUSION [Suspect]
     Active Substance: CYCLOSPORINE
     Indication: IMMUNOSUPPRESSION
     Dosage: UNK
     Route: 041
  6. ZOVIRAX [Concomitant]
     Active Substance: ACYCLOVIR
     Indication: PRODUCT USED FOR UNKNOWN INDICATION
     Dosage: UNK
     Route: 065
  7. VFEND [Concomitant]
     Active Substance: VORICONAZOLE
     Indication: INFECTION
  8. TACROLIMUS MONOHYDRATE [Concomitant]
     Active Substance: TACROLIMUS
     Indication: PRODUCT USED FOR UNKNOWN INDICATION
     Dosage: UNK
     Route: 065
  9. NEORAL [Suspect]
     Active Substance: CYCLOSPORINE
     Dosage: 160 MG
     Route: 048

REACTIONS (14)
  - General physical condition abnormal [Fatal]
  - Pain [Fatal]
  - Lymphocyte count decreased [Unknown]
  - Disseminated intravascular coagulation [Unknown]
  - Infection [Fatal]
  - Herpes zoster [Unknown]
  - Platelet count decreased [Unknown]
  - Decreased appetite [Unknown]
  - Leukaemia recurrent [Fatal]
  - Viral skin infection [Unknown]
  - Neutrophil count decreased [Unknown]
  - Fungal infection [Fatal]
  - Cytomegalovirus infection [Unknown]
  - Staphylococcal infection [Unknown]
